FAERS Safety Report 18568710 (Version 1)
Quarter: 2020Q4

REPORT INFORMATION
  Report Type: Spontaneous
  Country: US (occurrence: US)
  Receive Date: 20201202
  Receipt Date: 20201202
  Transmission Date: 20210114
  Serious: No
  Sender: FDA-Public Use
  Company Number: US-SA-2020SA343952

PATIENT

DRUGS (1)
  1. DUPIXENT [Suspect]
     Active Substance: DUPILUMAB
     Indication: ASTHMA
     Dosage: 300 MG, QOW
     Route: 058
     Dates: start: 201704, end: 2020

REACTIONS (4)
  - Contusion [Recovered/Resolved]
  - Eczema [Unknown]
  - Dermal cyst [Unknown]
  - Product use issue [Unknown]

NARRATIVE: CASE EVENT DATE: 201704
